FAERS Safety Report 6041611-X (Version None)
Quarter: 2009Q1

REPORT INFORMATION
  Report Type: 
  Country: None (occurrence: None)
  Receive Date: 20090116
  Receipt Date: 20090114
  Transmission Date: 20090719
  Serious: Yes (Other)
  Sender: FDA-Public Use
  Company Number: B0554079A

PATIENT
  Age: 12 Year
  Sex: Male

DRUGS (4)
  1. RELENZA [Suspect]
     Indication: INFLUENZA
     Dosage: 10MG TWICE PER DAY
     Route: 055
     Dates: start: 20081226, end: 20081230
  2. CLARITHROMYCIN [Concomitant]
     Indication: ANTIBIOTIC PROPHYLAXIS
     Dosage: 100MG TWICE PER DAY
     Route: 048
     Dates: start: 20081226
  3. ASTOMIN [Concomitant]
     Indication: COUGH
     Dosage: 10MG TWICE PER DAY
     Route: 048
     Dates: start: 20081226
  4. MUCODYNE [Concomitant]
     Indication: PRODUCTIVE COUGH
     Dosage: 250MG TWICE PER DAY
     Route: 048
     Dates: start: 20081226

REACTIONS (3)
  - ABNORMAL BEHAVIOUR [None]
  - BALANCE DISORDER [None]
  - HALLUCINATION [None]
